FAERS Safety Report 12645105 (Version 3)
Quarter: 2017Q1

REPORT INFORMATION
  Report Type: Spontaneous
  Country: US (occurrence: US)
  Receive Date: 20160811
  Receipt Date: 20170119
  Transmission Date: 20170428
  Serious: Yes (Congenital Anomaly, Other)
  Sender: FDA-Public Use
  Company Number: PHHY2015US127065

PATIENT
  Sex: Female

DRUGS (2)
  1. ZOFRAN [Suspect]
     Active Substance: ONDANSETRON HYDROCHLORIDE
     Indication: FOETAL EXPOSURE DURING PREGNANCY
     Dosage: MOTHER^S DOSE: 4 MG, AT UNKNOWN FREQUENCY
     Route: 064
  2. ZOFRAN [Suspect]
     Active Substance: ONDANSETRON HYDROCHLORIDE
     Indication: FOETAL EXPOSURE DURING PREGNANCY
     Dosage: UNK
     Route: 064

REACTIONS (17)
  - Pharyngitis [Unknown]
  - Fatigue [Unknown]
  - Foetal exposure during pregnancy [Unknown]
  - Bronchial hyperreactivity [Unknown]
  - Dyspnoea [Unknown]
  - Nasal congestion [Unknown]
  - Vomiting [Unknown]
  - Decreased appetite [Unknown]
  - Atrial septal defect [Unknown]
  - Cough [Unknown]
  - Odynophagia [Unknown]
  - Rash [Unknown]
  - Diarrhoea [Unknown]
  - Pneumonia [Unknown]
  - Dysphagia [Unknown]
  - Upper respiratory tract infection [Unknown]
  - Pyrexia [Unknown]
